FAERS Safety Report 9361959 (Version 4)
Quarter: 2014Q1

REPORT INFORMATION
  Report Type: Spontaneous
  Country: US (occurrence: US)
  Receive Date: 20130621
  Receipt Date: 20140328
  Transmission Date: 20141002
  Serious: Yes (Death, Other)
  Sender: FDA-Public Use
  Company Number: US-BRISTOL-MYERS SQUIBB COMPANY-19034701

PATIENT
  Age: 71 Year
  Sex: Male
  Weight: 84.8 kg

DRUGS (23)
  1. BYETTA [Suspect]
     Indication: TYPE 2 DIABETES MELLITUS
  2. JANUVIA [Suspect]
     Indication: TYPE 2 DIABETES MELLITUS
     Dosage: LAST THERAPY DATE ON JUL11
     Dates: start: 200909
  3. LISINOPRIL [Concomitant]
  4. GLYBURIDE [Concomitant]
  5. ACTOS [Concomitant]
  6. NEXIUM [Concomitant]
  7. CRESTOR [Concomitant]
  8. TRI-CHLOR [Concomitant]
  9. ASPIRIN [Concomitant]
  10. VITAMIN B6 [Concomitant]
  11. VITAMIN B12 [Concomitant]
  12. FISH OIL [Concomitant]
  13. DARVOCET [Concomitant]
  14. PROCRIT [Concomitant]
     Dosage: 1 DF: 1 CC Q
  15. IRON [Concomitant]
  16. AVAPRO [Concomitant]
  17. FOLGARD [Concomitant]
  18. AUGMENTIN [Concomitant]
     Dosage: WITH MEALS X1 WEEK
  19. ATARAX [Concomitant]
  20. OXYCODONE [Concomitant]
     Dosage: 1DF: 5 TO 10 MG TABLETS
  21. XANAX [Concomitant]
     Dosage: 1/6HRS
  22. NOVOLOG [Concomitant]
     Dosage: 1DF: 2 UNITS WITH EACH MEAL
  23. LANTUS [Concomitant]
     Dosage: 1DF: 10 UNITS

REACTIONS (2)
  - Pancreatic carcinoma [Fatal]
  - Nephrolithiasis [Unknown]
